FAERS Safety Report 8806512 (Version 5)
Quarter: 2013Q2

REPORT INFORMATION
  Report Type: Spontaneous
  Country: AU (occurrence: AU)
  Receive Date: 20120925
  Receipt Date: 20130412
  Transmission Date: 20140414
  Serious: Yes (Other)
  Sender: FDA-Public Use
  Company Number: AU-AMGEN-AUSSP2012059414

PATIENT
  Age: 74 Year
  Sex: Female
  Weight: 72.7 kg

DRUGS (3)
  1. PROLIA [Suspect]
     Indication: OSTEOPOROSIS POSTMENOPAUSAL
     Dosage: 60 MG, Q6MO
     Route: 058
     Dates: start: 20120301, end: 20120910
  2. CITRACAL                           /00751520/ [Concomitant]
     Indication: OSTEOPENIA
     Dosage: 500 MG, QD
     Route: 048
     Dates: start: 20100619
  3. CHOLECALCIFEROL [Concomitant]
     Indication: OSTEOPENIA
     Dosage: 25 MUG, QD
     Route: 048
     Dates: start: 20100619

REACTIONS (2)
  - Pathological fracture [Not Recovered/Not Resolved]
  - Pain in extremity [Unknown]
